FAERS Safety Report 9257751 (Version 2)
Quarter: 2014Q1

REPORT INFORMATION
  Report Type: Spontaneous
  Country: FR (occurrence: None)
  Receive Date: 20130422
  Receipt Date: 20140124
  Transmission Date: 20141002
  Serious: Yes (Other)
  Sender: FDA-Public Use
  Company Number: HRA-CDB20130039

PATIENT
  Sex: Female

DRUGS (1)
  1. ELLA [Suspect]
     Indication: POST COITAL CONTRACEPTION
     Route: 048

REACTIONS (5)
  - Unintended pregnancy [None]
  - Paraesthesia [None]
  - Paralysis [None]
  - Multiple sclerosis [None]
  - Pregnancy after post coital contraception [None]
